FAERS Safety Report 6719042-6 (Version None)
Quarter: 2010Q2

REPORT INFORMATION
  Report Type: 
  Country: None (occurrence: None)
  Receive Date: 20100507
  Receipt Date: 20100422
  Transmission Date: 20101027
  Serious: Yes (Hospitalization)
  Sender: FDA-Public Use
  Company Number: 2010001261

PATIENT
  Sex: Female
  Weight: 69.4 kg

DRUGS (3)
  1. ERLOTINIB (ERLOTINIB) (TABLET) (ERLOTINIB) [Suspect]
     Indication: COLON CANCER METASTATIC
     Dosage: 75 MG, QD, ORAL
     Route: 048
     Dates: start: 20100322
  2. GEMCITABINE [Suspect]
     Indication: COLON CANCER METASTATIC
     Dosage: 1000 MG/M2, DAY 1, 8, 15, 22, 29, 36 AND 43, INTRAVENOUS
     Route: 042
     Dates: start: 20100322
  3. GDC-0449 [Suspect]
     Indication: COLON CANCER METASTATIC
     Dosage: 150 MG, QD, ORAL
     Route: 048
     Dates: start: 20100322

REACTIONS (7)
  - ANAEMIA [None]
  - CYSTITIS [None]
  - NAUSEA [None]
  - NEUTROPENIA [None]
  - THROMBOCYTOPENIA [None]
  - URINARY TRACT INFECTION [None]
  - VOMITING [None]
